FAERS Safety Report 6945122-6 (Version None)
Quarter: 2010Q3

REPORT INFORMATION
  Report Type: 
  Country: None (occurrence: None)
  Receive Date: 20100827
  Receipt Date: 20100820
  Transmission Date: 20110219
  Serious: Yes (Other)
  Sender: FDA-Public Use
  Company Number: IE-JNJFOC-20100807314

PATIENT
  Age: 56 Year
  Sex: Female

DRUGS (8)
  1. REMICADE [Suspect]
     Indication: COLITIS ULCERATIVE
     Dosage: 8 INFUSIONS
     Route: 042
  2. REMICADE [Suspect]
     Route: 042
  3. PREDNISOLONE [Concomitant]
  4. BISOPROLOL FUMARATE [Concomitant]
  5. VALTREX [Concomitant]
  6. NU-SEALS [Concomitant]
  7. STILNOCT [Concomitant]
  8. IDEOS [Concomitant]

REACTIONS (5)
  - FLUSHING [None]
  - HYPERSENSITIVITY [None]
  - INFUSION RELATED REACTION [None]
  - LIP SWELLING [None]
  - PALPITATIONS [None]
